FAERS Safety Report 9736218 (Version 1)
Quarter: 2013Q4

REPORT INFORMATION
  Report Type: Spontaneous
  Country: US (occurrence: US)
  Receive Date: 20131206
  Receipt Date: 20131206
  Transmission Date: 20140711
  Serious: No
  Sender: FDA-Public Use
  Company Number: US-PFIZER INC-2013348840

PATIENT
  Age: 22 Year
  Sex: Male

DRUGS (4)
  1. GEODON [Suspect]
     Indication: SCHIZOAFFECTIVE DISORDER
     Dosage: 20 MG, 1X/DAY (AT A BED TIME)
     Route: 048
     Dates: start: 20131108, end: 20131114
  2. GEODON [Suspect]
     Indication: PSYCHOTIC DISORDER
     Dosage: 80MG IN THE MORNING AND 160MG (BY TAKING TWO 80MG TOGETHER) AT NIGHT
     Route: 048
     Dates: start: 20131114, end: 2013
  3. GEODON [Suspect]
     Dosage: UNK, 1X/DAY
     Route: 048
     Dates: start: 2013
  4. WELLBUTRIN [Concomitant]
     Dosage: UNK (300MG IN THE MORNING AND 150MG AT NIGHT)

REACTIONS (1)
  - Drug ineffective [Unknown]
